FAERS Safety Report 15559792 (Version 2)
Quarter: 2018Q4

REPORT INFORMATION
  Report Type: Spontaneous
  Country: US (occurrence: US)
  Receive Date: 20181029
  Receipt Date: 20181122
  Transmission Date: 20190205
  Serious: Yes (Hospitalization, Other)
  Sender: FDA-Public Use
  Company Number: US-CIPLA LTD.-2013US00946

PATIENT

DRUGS (3)
  1. ACYCLOVIR                          /00587301/ [Suspect]
     Active Substance: ACYCLOVIR
     Indication: EVIDENCE BASED TREATMENT
     Dosage: 600 MG, RECEIVED 9 DOSES OF ACICLOVIR OVER 6 DAYS.
     Route: 042
  2. VALACYCLOVIR [Suspect]
     Active Substance: VALACYCLOVIR HYDROCHLORIDE
     Indication: HERPES ZOSTER
     Dosage: 2 G, (IN TOTAL), A TOTAL OF 2 DOSES OF VALACICLOVIR (1 G EACH, ORALLY)
     Route: 048
  3. LABETALOL [Concomitant]
     Active Substance: LABETALOL\LABETALOL HYDROCHLORIDE
     Indication: HYPERTENSION
     Dosage: UNK
     Route: 042

REACTIONS (8)
  - Asthenia [Unknown]
  - Neurotoxicity [Recovered/Resolved]
  - Restlessness [Recovered/Resolved]
  - Irritability [Recovered/Resolved]
  - Hallucination, auditory [Recovered/Resolved]
  - Dizziness [Recovered/Resolved]
  - Status epilepticus [Recovered/Resolved]
  - Hallucination [Recovered/Resolved]

NARRATIVE: CASE EVENT DATE: 201107
